FAERS Safety Report 7270660-9 (Version None)
Quarter: 2011Q1

REPORT INFORMATION
  Report Type: 
  Country: None (occurrence: None)
  Receive Date: 20110202
  Receipt Date: 20110131
  Transmission Date: 20110831
  Serious: Yes (Other)
  Sender: FDA-Public Use
  Company Number: A0911067A

PATIENT
  Age: 37 Year
  Sex: Female

DRUGS (5)
  1. EPZICOM [Suspect]
     Indication: HIV INFECTION
     Dosage: 1TAB PER DAY
     Route: 048
  2. KALETRA [Suspect]
     Indication: HIV INFECTION
     Dosage: 4TAB SINGLE DOSE
     Route: 048
     Dates: start: 20101007
  3. ISENTRESS [Suspect]
     Dosage: 800MGD PER DAY
     Route: 048
     Dates: start: 20110113
  4. VIREAD [Suspect]
     Indication: HIV INFECTION
     Dosage: 300MGD PER DAY
     Route: 048
  5. ISENTRESS [Suspect]
     Indication: HIV INFECTION
     Dosage: 800MGD PER DAY
     Route: 048
     Dates: end: 20101007

REACTIONS (2)
  - ABORTION SPONTANEOUS [None]
  - DRUG EXPOSURE DURING PREGNANCY [None]
